FAERS Safety Report 6969555-7 (Version None)
Quarter: 2010Q3

REPORT INFORMATION
  Report Type: 
  Country: None (occurrence: None)
  Receive Date: 20100907
  Receipt Date: 20100907
  Transmission Date: 20110219
  Serious: Yes (Other)
  Sender: FDA-Public Use
  Company Number: None

PATIENT
  Age: 47 Year
  Sex: Male
  Weight: 78.0187 kg

DRUGS (2)
  1. EFFEXOR XR [Suspect]
     Indication: DEPRESSION
     Dosage: 150MG 1X/D
     Dates: start: 20091210, end: 20100905
  2. LEVOXYL [Concomitant]

REACTIONS (11)
  - APATHY [None]
  - BEDRIDDEN [None]
  - CRYING [None]
  - DRUG INEFFECTIVE [None]
  - FATIGUE [None]
  - FEELINGS OF WORTHLESSNESS [None]
  - NAUSEA [None]
  - PAIN [None]
  - STUPOR [None]
  - SUICIDAL IDEATION [None]
  - THINKING ABNORMAL [None]
